FAERS Safety Report 8702283 (Version 2)
Quarter: 2013Q2

REPORT INFORMATION
  Report Type: Report from Study
  Country: JP (occurrence: JP)
  Receive Date: 20120803
  Receipt Date: 20130511
  Transmission Date: 20140414
  Serious: Yes (Hospitalization)
  Sender: FDA-Public Use
  Company Number: JP-009507513-1207JPN012606

PATIENT
  Age: 70 Year
  Sex: Male
  Weight: 54 kg

DRUGS (14)
  1. PEGINTRON [Suspect]
     Indication: CHRONIC HEPATITIS C
     Dosage: 1.5MCG/KG/WEEK
     Route: 058
     Dates: start: 20120510, end: 20120530
  2. PEGINTRON [Suspect]
     Dosage: 0.9 MCG/KG/WEEK
     Route: 058
     Dates: start: 20120531
  3. REBETOL [Suspect]
     Indication: CHRONIC HEPATITIS C
     Dosage: 600 MG, QD
     Route: 048
     Dates: start: 20120510, end: 20120523
  4. REBETOL [Suspect]
     Dosage: 200 MG, QD
     Route: 048
     Dates: start: 20120524
  5. TELAVIC [Suspect]
     Indication: CHRONIC HEPATITIS C
     Dosage: 2250 MG,ONCE DAILY
     Route: 048
     Dates: start: 20120510, end: 20120523
  6. TELAVIC [Suspect]
     Dosage: 1500 MG, ONCE DAILY
     Route: 048
     Dates: start: 20120524, end: 20120527
  7. TELAVIC [Suspect]
     Dosage: 750 MG, QD
     Route: 048
     Dates: start: 20120528
  8. AMOBAN [Concomitant]
     Indication: PROPHYLAXIS
     Dosage: 7.5 MG PER DAY AS NEEDED
     Route: 048
     Dates: end: 20120704
  9. LOXONIN [Concomitant]
     Indication: PROPHYLAXIS
     Dosage: DAILY DOSE UNKNOWN, AS NEEDED
     Route: 048
  10. FERROMIA [Concomitant]
     Indication: IRON DEFICIENCY ANAEMIA
     Dosage: 100 MG, QD
     Route: 048
     Dates: start: 20120508, end: 20120524
  11. FERROMIA [Concomitant]
     Dosage: 50 MG, QD
     Route: 048
  12. DIOVAN [Concomitant]
     Indication: HYPERTENSION
     Dosage: 40 MG, QD
     Route: 048
  13. FEBURIC [Concomitant]
     Indication: PROPHYLAXIS
     Dosage: 20 MG, QD
     Route: 048
     Dates: start: 20120510, end: 20120802
  14. EPADEL S [Concomitant]
     Indication: DYSLIPIDAEMIA
     Dosage: 2 DF, QD
     Route: 048
     Dates: start: 20120510

REACTIONS (1)
  - Pyelonephritis [Recovering/Resolving]
